FAERS Safety Report 5449500-6 (Version None)
Quarter: 2007Q3

REPORT INFORMATION
  Report Type: 
  Country: None (occurrence: None)
  Receive Date: 20070907
  Receipt Date: 20070905
  Transmission Date: 20080115
  Serious: Yes (Other)
  Sender: FDA-Public Use
  Company Number: 2007AP000930

PATIENT
  Age: 35 Year
  Sex: Female

DRUGS (5)
  1. PAROXETINE HCL [Suspect]
     Indication: ANXIETY
     Dosage: 20 MG; PO
     Route: 048
     Dates: start: 20070511, end: 20070513
  2. PAROXETINE HCL [Suspect]
     Indication: STRESS AT WORK
     Dosage: 20 MG; PO
     Route: 048
     Dates: start: 20070511, end: 20070513
  3. SALBUTAMOL (SALBUTAMOL) [Concomitant]
  4. FLUTICASONE PROPIONATE [Concomitant]
  5. SALMETEROL XINAFOATE (SALMETEROL XINAFOATE) [Concomitant]

REACTIONS (5)
  - ANOREXIA [None]
  - BALANCE DISORDER [None]
  - MUSCLE TWITCHING [None]
  - NAUSEA [None]
  - TREMOR [None]
